FAERS Safety Report 24989551 (Version 1)
Quarter: 2025Q1

REPORT INFORMATION
  Report Type: Spontaneous
  Country: FR (occurrence: FR)
  Receive Date: 20250220
  Receipt Date: 20250220
  Transmission Date: 20250409
  Serious: Yes (Hospitalization, Other)
  Sender: ALEXION PHARMACEUTICALS
  Company Number: None

PATIENT
  Age: 63 Year
  Weight: 76 kg

DRUGS (3)
  1. IMFINZI [Suspect]
     Active Substance: DURVALUMAB
     Indication: Neoplasm malignant
     Dosage: 10 MILLIGRAM/KILOGRAM, Q2W (10 MG/KG ONCE EVERY 2 WEEKS)
  2. NEXAVAR [Suspect]
     Active Substance: SORAFENIB
     Indication: Neoplasm malignant
     Dosage: 4 DOSAGE FORM, QD (400 MG TWICE DAILY)
  3. IOBITRIDOL [Concomitant]
     Active Substance: IOBITRIDOL
     Indication: Scan

REACTIONS (4)
  - Toxic skin eruption [Recovered/Resolved]
  - Mouth ulceration [Recovered/Resolved]
  - Hyperleukocytosis [Recovered/Resolved]
  - Pyrexia [Recovered/Resolved]
